FAERS Safety Report 13828356 (Version 4)
Quarter: 2017Q4

REPORT INFORMATION
  Report Type: Spontaneous
  Country: US (occurrence: US)
  Receive Date: 20170803
  Receipt Date: 20171003
  Transmission Date: 20180320
  Serious: No
  Sender: FDA-Public Use
  Company Number: US-PFIZER INC-2017333040

PATIENT
  Age: 81 Year
  Sex: Female
  Weight: 57.6 kg

DRUGS (2)
  1. IBRANCE [Suspect]
     Active Substance: PALBOCICLIB
     Indication: BREAST CANCER METASTATIC
     Dosage: 125 MG, CYCLIC  (DAILY, DAY 1-21 EVERY 28 DAYS)/ (D1-21 Q28 DAYS)
     Route: 048
     Dates: start: 20170717, end: 201708
  2. IBRANCE [Suspect]
     Active Substance: PALBOCICLIB
     Dosage: 75 MG, CYCLIC (DAILY, DAY 1-21 EVERY 28 DAYS)/ (D1-21 Q28 DAYS)
     Route: 048
     Dates: start: 20170817, end: 20170918

REACTIONS (2)
  - White blood cell count decreased [Not Recovered/Not Resolved]
  - Full blood count decreased [Not Recovered/Not Resolved]

NARRATIVE: CASE EVENT DATE: 20170731
